FAERS Safety Report 7777754 (Version 4)
Quarter: 2014Q1

REPORT INFORMATION
  Report Type: Spontaneous
  Country: US (occurrence: US)
  Receive Date: 20110128
  Receipt Date: 20140314
  Transmission Date: 20141002
  Serious: Yes (Other)
  Sender: FDA-Public Use
  Company Number: US-BAYER-2010-009086

PATIENT
  Age: 21 Year
  Sex: Female

DRUGS (1)
  1. YAZ [Suspect]
     Indication: CONTRACEPTION
     Dosage: UNK
     Route: 048
     Dates: start: 20070914, end: 201007

REACTIONS (6)
  - Cholecystitis chronic [None]
  - Cholelithiasis [None]
  - Abdominal pain upper [None]
  - Vomiting [None]
  - Pain [None]
  - Injury [None]
